FAERS Safety Report 14664617 (Version 1)
Quarter: 2018Q1

REPORT INFORMATION
  Report Type: Spontaneous
  Country: CO (occurrence: CO)
  Receive Date: 20180321
  Receipt Date: 20180321
  Transmission Date: 20180509
  Serious: Yes (Hospitalization, Other)
  Sender: FDA-Public Use
  Company Number: CO-ASTELLAS-2012US007015

PATIENT
  Sex: Male

DRUGS (2)
  1. PROGRAF [Suspect]
     Active Substance: TACROLIMUS\TACROLIMUS ANHYDROUS
     Indication: RENAL TRANSPLANT
     Dosage: UNK UNK, UNKNOWN FREQ.
     Route: 048
  2. MYCOPHENOLATE [Concomitant]
     Active Substance: MYCOPHENOLIC ACID
     Indication: PRODUCT USED FOR UNKNOWN INDICATION
     Dosage: UNK, UNKNOWN FREQ.
     Route: 065

REACTIONS (3)
  - Kidney transplant rejection [Not Recovered/Not Resolved]
  - Blood creatinine increased [Not Recovered/Not Resolved]
  - Treatment noncompliance [Not Recovered/Not Resolved]

NARRATIVE: CASE EVENT DATE: 20120808
